FAERS Safety Report 19054460 (Version 3)
Quarter: 2021Q3

REPORT INFORMATION
  Report Type: Spontaneous
  Country: JP (occurrence: JP)
  Receive Date: 20210325
  Receipt Date: 20210907
  Transmission Date: 20211014
  Serious: Yes (Other)
  Sender: FDA-Public Use
  Company Number: NVSJ2020JP012596

PATIENT
  Age: 73 Year
  Sex: Male

DRUGS (3)
  1. BEOVU [Suspect]
     Active Substance: BROLUCIZUMAB-DBLL
     Indication: NEOVASCULAR AGE-RELATED MACULAR DEGENERATION
     Dosage: 6 MG
     Route: 031
     Dates: start: 20200916, end: 20200916
  2. BEOVU [Suspect]
     Active Substance: BROLUCIZUMAB-DBLL
     Dosage: 6 MG
     Route: 031
     Dates: start: 20201021, end: 20201021
  3. BEOVU [Suspect]
     Active Substance: BROLUCIZUMAB-DBLL
     Dosage: 6 MG
     Route: 031
     Dates: start: 202103, end: 202103

REACTIONS (5)
  - Ocular hyperaemia [Recovered/Resolved]
  - Vitreous floaters [Recovered/Resolved]
  - Visual acuity reduced [Unknown]
  - Keratic precipitates [Recovered/Resolved]
  - Vitreous opacities [Recovered/Resolved]

NARRATIVE: CASE EVENT DATE: 20201108
